FAERS Safety Report 5320824-6 (Version None)
Quarter: 2007Q2

REPORT INFORMATION
  Report Type: 
  Country: None (occurrence: None)
  Receive Date: 20070509
  Receipt Date: 20070501
  Transmission Date: 20071010
  Serious: Yes (Other)
  Sender: FDA-Public Use
  Company Number: US-MERCK-0704USA01088

PATIENT
  Age: 87 Year
  Sex: Female
  Weight: 77 kg

DRUGS (23)
  1. JANUVIA [Suspect]
     Indication: DIABETES MELLITUS NON-INSULIN-DEPENDENT
     Route: 048
     Dates: start: 20070321, end: 20070330
  2. GLIPIZIDE [Concomitant]
     Indication: DIABETES MELLITUS NON-INSULIN-DEPENDENT
     Route: 065
     Dates: end: 20070320
  3. DIOVAN [Concomitant]
     Route: 065
  4. ASPIRIN [Concomitant]
     Route: 065
  5. MAGNESIUM OXIDE [Concomitant]
     Route: 065
  6. LIPITOR [Concomitant]
     Route: 065
  7. PLAVIX [Concomitant]
     Route: 065
  8. DARVOCET-N 100 [Concomitant]
     Route: 065
  9. TRAZODONE HYDROCHLORIDE [Concomitant]
     Route: 065
  10. TOPROL-XL [Concomitant]
     Route: 065
  11. FUROSEMIDE [Concomitant]
     Route: 065
  12. ULTRAM [Concomitant]
     Route: 065
  13. PERCOCET [Concomitant]
     Route: 065
  14. ZOFRAN [Concomitant]
     Route: 065
  15. AMBIEN [Concomitant]
     Route: 065
  16. XANAX [Concomitant]
     Route: 065
  17. IMODIUM [Concomitant]
     Route: 065
  18. COLACE [Concomitant]
     Route: 065
  19. POTASSIUM CHLORIDE [Concomitant]
     Route: 065
  20. LANOXIN [Concomitant]
     Route: 065
  21. LOVENOX [Concomitant]
     Route: 058
  22. NOVOLIN R [Concomitant]
     Route: 065
  23. APIDRA [Concomitant]
     Route: 065

REACTIONS (4)
  - ANAEMIA [None]
  - ATRIAL FIBRILLATION [None]
  - BLOOD GLUCOSE DECREASED [None]
  - BRADYARRHYTHMIA [None]
